FAERS Safety Report 10384492 (Version 1)
Quarter: 2014Q3

REPORT INFORMATION
  Report Type: Spontaneous
  Country: CH (occurrence: CH)
  Receive Date: 20140814
  Receipt Date: 20140814
  Transmission Date: 20150326
  Serious: Yes (Hospitalization)
  Sender: FDA-Public Use
  Company Number: CH-009507513-1408CHE007669

PATIENT
  Age: 93 Year
  Sex: Male
  Weight: 78 kg

DRUGS (13)
  1. OXYNORM [Suspect]
     Active Substance: OXYCODONE HYDROCHLORIDE
     Indication: BACK PAIN
     Dosage: 2 MG, TID
     Route: 048
     Dates: start: 20140414, end: 20140416
  2. ZOLPIDEM TARTRATE. [Suspect]
     Active Substance: ZOLPIDEM TARTRATE
     Indication: INSOMNIA
     Dosage: 5 MG, ONCE DAILY
     Route: 048
     Dates: start: 20140530, end: 20140530
  3. BUPRENORPHINE HYDROCHLORIDE. [Suspect]
     Active Substance: BUPRENORPHINE HYDROCHLORIDE
     Indication: BACK PAIN
     Dosage: 0.1 MG, BID
     Route: 048
     Dates: start: 20140515, end: 20140623
  4. REMERON [Suspect]
     Active Substance: MIRTAZAPINE
     Dosage: UNK
     Route: 048
     Dates: start: 20140621
  5. AMLODIPINE [Concomitant]
     Active Substance: AMLODIPINE BESYLATE
     Indication: ESSENTIAL HYPERTENSION
     Dosage: 10 MG, QD
     Route: 048
     Dates: start: 20140427
  6. AMARYL [Concomitant]
     Active Substance: GLIMEPIRIDE
     Indication: DIABETES MELLITUS
     Dosage: 2 MG, QD
     Route: 048
     Dates: end: 20140522
  7. VITARUBIN (CYANOCOBALAMIN) [Concomitant]
     Indication: VITAMIN B12 DEFICIENCY
     Dosage: 1000 MICROGRAMS, ONCE PER MONTH
     Route: 042
     Dates: start: 20140525
  8. CO-ENALAPRIL [Concomitant]
     Active Substance: ENALAPRIL MALEATE\HYDROCHLOROTHIAZIDE
     Indication: ESSENTIAL HYPERTENSION
     Dosage: 1 DF, QD, 12.5/20 MG
     Route: 048
  9. GLUCOPHAGE [Concomitant]
     Active Substance: METFORMIN HYDROCHLORIDE
     Indication: DIABETES MELLITUS
     Dosage: 500 MG, BID
     Route: 048
  10. TEBOKAN [Concomitant]
     Indication: MEMORY IMPAIRMENT
     Dosage: 120 MG, QD
     Route: 048
  11. DAFALGAN [Concomitant]
     Active Substance: ACETAMINOPHEN
     Indication: BACK PAIN
     Dosage: 1000 MG, TID (ALSO REPORTED AS AS NEEDED)
     Route: 048
  12. REMERON [Suspect]
     Active Substance: MIRTAZAPINE
     Indication: DEPRESSION
     Dosage: 15 MG, ONCE DAILY
     Route: 048
     Dates: start: 20140523, end: 2014
  13. LYRICA [Suspect]
     Active Substance: PREGABALIN
     Indication: NEURALGIA
     Dosage: 25 MG, BID
     Route: 048
     Dates: start: 20140414

REACTIONS (11)
  - Fall [Recovered/Resolved]
  - Confusional state [Recovering/Resolving]
  - Renal impairment [Unknown]
  - Fall [Recovered/Resolved]
  - Dehydration [Unknown]
  - Spinal pain [Unknown]
  - Fall [Recovered/Resolved]
  - Somnolence [Recovered/Resolved]
  - Fall [Recovered/Resolved]
  - Fall [Recovered/Resolved]
  - Fall [Recovered/Resolved]

NARRATIVE: CASE EVENT DATE: 2014
